FAERS Safety Report 8078539-X (Version None)
Quarter: 2012Q1

REPORT INFORMATION
  Report Type: 
  Country: None (occurrence: None)
  Receive Date: 20120124
  Receipt Date: 20120117
  Transmission Date: 20120608
  Serious: Yes (Hospitalization)
  Sender: FDA-Public Use
  Company Number: 1000027188

PATIENT
  Age: 72 Year
  Sex: Female

DRUGS (1)
  1. DALIRESP [Suspect]
     Indication: CHRONIC OBSTRUCTIVE PULMONARY DISEASE
     Dosage: (1 IN 1 D), ORAL
     Route: 048
     Dates: start: 20120113, end: 20120114

REACTIONS (1)
  - MYOCARDIAL INFARCTION [None]
